FAERS Safety Report 8486024-6 (Version None)
Quarter: 2012Q3

REPORT INFORMATION
  Report Type: 
  Country: None (occurrence: None)
  Receive Date: 20120703
  Receipt Date: 20120628
  Transmission Date: 20120928
  Serious: Yes (Other)
  Sender: FDA-Public Use
  Company Number: US-PFIZER INC-2012156160

PATIENT
  Sex: Male
  Weight: 90.7 kg

DRUGS (9)
  1. CLEOCIN HYDROCHLORIDE [Suspect]
     Dosage: 300 MG, 3X/DAY
     Route: 048
  2. ALBUTEROL [Concomitant]
     Indication: ASTHMA
     Dosage: UNK
  3. NEURONTIN [Suspect]
     Indication: HEADACHE
  4. NORVASC [Suspect]
     Indication: HYPERTENSION
     Dosage: 10 MG, 1X/DAY
  5. SPIRIVA [Concomitant]
     Indication: CHRONIC OBSTRUCTIVE PULMONARY DISEASE
     Dosage: UNK
  6. MULTIPLE VITAMIN [Concomitant]
     Dosage: UNK
  7. NEURONTIN [Suspect]
     Indication: LOSS OF CONSCIOUSNESS
  8. PRAVASTATIN [Concomitant]
     Dosage: UNK
  9. NEURONTIN [Suspect]
     Indication: CONVULSION
     Dosage: 300 MG, 3X/DAY

REACTIONS (2)
  - ROAD TRAFFIC ACCIDENT [None]
  - HAND FRACTURE [None]
